FAERS Safety Report 7529988-7 (Version None)
Quarter: 2011Q2

REPORT INFORMATION
  Report Type: 
  Country: None (occurrence: None)
  Receive Date: 20110527
  Receipt Date: 20110511
  Transmission Date: 20111010
  Serious: Yes (Other)
  Sender: FDA-Public Use
  Company Number: 2011SP007951

PATIENT
  Age: 73 Year
  Sex: Female
  Weight: 90.7194 kg

DRUGS (10)
  1. MIRALAX [Suspect]
     Indication: CONSTIPATION
     Dosage: GM;QD;PO,  GM; PO
     Route: 048
     Dates: start: 20070401, end: 20110101
  2. MIRALAX [Suspect]
     Indication: CONSTIPATION
     Dosage: GM;QD;PO,  GM; PO
     Route: 048
  3. FLAX SEED OIL [Concomitant]
  4. POTASSIUM  /00031402/ [Concomitant]
  5. VITAMIN A  /00056001/ [Concomitant]
  6. MAGNESIUM   /00082501/ [Concomitant]
  7. CALCIUM +D [Concomitant]
  8. ALPRAZOLAM [Concomitant]
  9. ASPIRIN [Concomitant]
  10. VITAMIN C /00008001/ [Concomitant]

REACTIONS (11)
  - INCORRECT DRUG ADMINISTRATION DURATION [None]
  - FLATULENCE [None]
  - NAIL DISORDER [None]
  - CHOLELITHIASIS [None]
  - ARTHROPATHY [None]
  - HAIR TEXTURE ABNORMAL [None]
  - EXOSTOSIS [None]
  - ABDOMINAL DISTENSION [None]
  - MEMORY IMPAIRMENT [None]
  - DRY SKIN [None]
  - ALOPECIA [None]
